FAERS Safety Report 12303745 (Version 1)
Quarter: 2016Q2

REPORT INFORMATION
  Report Type: Spontaneous
  Country: US (occurrence: None)
  Receive Date: 20160425
  Receipt Date: 20160425
  Transmission Date: 20160815
  Serious: Yes (Hospitalization)
  Sender: FDA-Public Use
  Company Number: None

PATIENT
  Age: 64 Year
  Sex: Female
  Weight: 58.5 kg

DRUGS (5)
  1. CYTARABINE. [Suspect]
     Active Substance: CYTARABINE
     Dates: end: 20150521
  2. RITUXIMAB (MOAB C2B8 AND CD20, CHIMERIC) [Suspect]
     Active Substance: RITUXIMAB
     Dates: end: 20150506
  3. METHOTREXATE [Suspect]
     Active Substance: METHOTREXATE
     Dates: end: 20150507
  4. VINCRISTINE [Concomitant]
     Active Substance: VINCRISTINE
     Dates: end: 20150312
  5. PROCARBAZINE [Suspect]
     Active Substance: PROCARBAZINE
     Dates: end: 20150429

REACTIONS (8)
  - Neutropenia [None]
  - Back pain [None]
  - Pyrexia [None]
  - Pneumonia [None]
  - Pancytopenia [None]
  - Muscle spasms [None]
  - Cough [None]
  - Sepsis [None]

NARRATIVE: CASE EVENT DATE: 20150529
